FAERS Safety Report 10176457 (Version 1)
Quarter: 2014Q2

REPORT INFORMATION
  Report Type: Spontaneous
  Country: NL (occurrence: NL)
  Receive Date: 20140516
  Receipt Date: 20140516
  Transmission Date: 20141212
  Serious: Yes (Life-Threatening)
  Sender: FDA-Public Use
  Company Number: NL-PFIZER INC-2014132560

PATIENT
  Age: 54 Year
  Sex: Female
  Weight: 80 kg

DRUGS (2)
  1. SULFASALAZINE [Suspect]
     Indication: ARTHRALGIA
     Dosage: UNK
     Dates: start: 2009, end: 2010
  2. CLOMIPRAMINE [Concomitant]
     Dosage: 37.5 MG, 1X/DAY
     Dates: start: 1999

REACTIONS (2)
  - Nervous system disorder [Recovered/Resolved]
  - Fall [Recovered/Resolved]
